FAERS Safety Report 6266645-1 (Version None)
Quarter: 2009Q3

REPORT INFORMATION
  Report Type: 
  Country: None (occurrence: None)
  Receive Date: 20090710
  Receipt Date: 20090702
  Transmission Date: 20100115
  Serious: Yes (Life-Threatening)
  Sender: FDA-Public Use
  Company Number: 315061

PATIENT
  Age: 77 Year
  Sex: Female
  Weight: 82 kg

DRUGS (25)
  1. LORAZEPAM [Suspect]
     Indication: ANXIETY
     Dosage: 2 MG, 1 DAY, INTRAVENOUS
     Route: 042
     Dates: start: 20090701, end: 20090701
  2. LORAZEPAM [Concomitant]
  3. SILVADENE [Concomitant]
  4. ASPIRIN [Concomitant]
  5. PLAVIX [Concomitant]
  6. PREDNISONE TAB [Concomitant]
  7. SYNTHROID [Concomitant]
  8. LOPRESSOR [Concomitant]
  9. COZAAR [Concomitant]
  10. EFFEXOR XR [Concomitant]
  11. (PHENRRGAN /00033001/) [Concomitant]
  12. LORTAB [Concomitant]
  13. (COUMIDIN  /00014802/) [Concomitant]
  14. (RESTORTL  /00393701/) [Concomitant]
  15. TYLENOL (CAPLET) [Concomitant]
     Dosage: 500MG
  16. MORPHINE [Concomitant]
  17. HYDROCHLOROTHIAZIDE [Concomitant]
  18. HALDOL [Concomitant]
  19. SOLU-MEDROL [Concomitant]
  20. PROVENTIL-HFA [Concomitant]
  21. LANOXIN [Concomitant]
  22. ............... [Concomitant]
  23. CEFAZOLIN [Concomitant]
  24. SODIUM CHLORIDE [Concomitant]
     Dosage: 2ML (12 HR)
     Dates: start: 20090701, end: 20090701
  25. SODIUM CHLORIDE [Concomitant]
     Dosage: 2ML (12 HR)
     Dates: start: 20090702, end: 20090702

REACTIONS (4)
  - CYANOSIS [None]
  - DYSPNOEA [None]
  - OXYGEN SATURATION DECREASED [None]
  - UNRESPONSIVE TO STIMULI [None]
